FAERS Safety Report 6940316-8 (Version None)
Quarter: 2010Q3

REPORT INFORMATION
  Report Type: 
  Country: None (occurrence: None)
  Receive Date: 20100825
  Receipt Date: 20100811
  Transmission Date: 20110219
  Serious: Yes (Other)
  Sender: FDA-Public Use
  Company Number: US-ELI_LILLY_AND_COMPANY-US201008003748

PATIENT
  Sex: Male

DRUGS (12)
  1. CYMBALTA [Suspect]
     Indication: MAJOR DEPRESSION
     Dosage: 60 MG, DAILY (1/D)
  2. CYMBALTA [Suspect]
     Dosage: 30 MG, DAILY (1/D)
  3. ALLOPURINOL [Concomitant]
     Indication: GOUT
  4. SPIRIVA [Concomitant]
     Indication: CHRONIC OBSTRUCTIVE PULMONARY DISEASE
  5. GEODON [Concomitant]
     Indication: HALLUCINATION
  6. LAMICTAL [Concomitant]
     Indication: HALLUCINATION
  7. KLONOPIN [Concomitant]
     Indication: MANIA
  8. TRAZODONE HCL [Concomitant]
  9. AMBIEN [Concomitant]
     Dosage: 10 MG, UNK
  10. COLCHICINE [Concomitant]
     Indication: GOUT
  11. SEROQUEL [Concomitant]
     Dosage: 950 MG, UNK
  12. VITAMINS [Concomitant]

REACTIONS (27)
  - ABDOMINAL DISTENSION [None]
  - AGITATION [None]
  - ARTHRITIS [None]
  - BACK DISORDER [None]
  - DECREASED APPETITE [None]
  - DIZZINESS [None]
  - DRY MOUTH [None]
  - DYSPEPSIA [None]
  - DYSPHONIA [None]
  - DYSPNOEA [None]
  - ERECTILE DYSFUNCTION [None]
  - FATIGUE [None]
  - GLAUCOMA [None]
  - HEADACHE [None]
  - HOT FLUSH [None]
  - HYPERHIDROSIS [None]
  - HYPOKINESIA [None]
  - INSOMNIA [None]
  - MEMORY IMPAIRMENT [None]
  - MENTAL DISORDER [None]
  - MUSCLE SPASMS [None]
  - MUSCULOSKELETAL STIFFNESS [None]
  - PALPITATIONS [None]
  - PANIC ATTACK [None]
  - SOMNOLENCE [None]
  - TREMOR [None]
  - URINARY RETENTION [None]
